FAERS Safety Report 4936762-4 (Version None)
Quarter: 2006Q1

REPORT INFORMATION
  Report Type: 
  Country: None (occurrence: None)
  Receive Date: 20060302
  Receipt Date: 20060224
  Transmission Date: 20060701
  Serious: Yes (Other)
  Sender: FDA-Public Use
  Company Number: 006710

PATIENT
  Age: 33 Year
  Sex: Female

DRUGS (3)
  1. DIAMOX [Suspect]
     Indication: MOUNTAIN SICKNESS ACUTE
  2. DIAMOX [Suspect]
     Indication: PROPHYLAXIS
  3. ORGAMETRIL (LYNESTRENOL) [Concomitant]

REACTIONS (2)
  - DEEP VEIN THROMBOSIS [None]
  - THROMBOPHLEBITIS SUPERFICIAL [None]
